FAERS Safety Report 7688431-8 (Version None)
Quarter: 2011Q3

REPORT INFORMATION
  Report Type: 
  Country: None (occurrence: None)
  Receive Date: 20110817
  Receipt Date: 20110803
  Transmission Date: 20111222
  Serious: Yes (Hospitalization)
  Sender: FDA-Public Use
  Company Number: DE-CELGENEUS-062-20785-10080464

PATIENT
  Age: 49 Year
  Sex: Female
  Weight: 86.8 kg

DRUGS (7)
  1. RAMIPRIL [Concomitant]
     Route: 065
  2. THALIDOMIDE [Suspect]
     Indication: MULTIPLE MYELOMA
     Dosage: 100 MILLIGRAM
     Route: 048
     Dates: start: 20100318, end: 20100804
  3. ANTI-THYMOCYTE GLOBULIN NOS [Suspect]
     Indication: MULTIPLE MYELOMA
     Route: 065
  4. CEFUROXIME [Concomitant]
     Indication: TONSILLITIS
     Route: 065
     Dates: start: 20100101, end: 20100101
  5. TORSEMIDE [Concomitant]
     Route: 065
  6. CALCIUM/VITAMIN D [Concomitant]
     Route: 065
  7. MELPHALAN HYDROCHLORIDE [Suspect]
     Indication: MULTIPLE MYELOMA
     Route: 065
     Dates: start: 20091020

REACTIONS (3)
  - TRANSIENT ISCHAEMIC ATTACK [None]
  - CEREBRAL ARTERY STENOSIS [None]
  - UPPER LIMB FRACTURE [None]
